FAERS Safety Report 13626539 (Version 1)
Quarter: 2017Q2

REPORT INFORMATION
  Report Type: Spontaneous
  Country: US (occurrence: US)
  Receive Date: 20170608
  Receipt Date: 20170608
  Transmission Date: 20170830
  Serious: Yes (Other)
  Sender: FDA-Public Use
  Company Number: US-BRAINTREE LABORATORIES-170319-1

PATIENT
  Age: 77 Year
  Sex: Female
  Weight: 62.6 kg

DRUGS (1)
  1. SUPREP BOWEL PREP [Suspect]
     Active Substance: MAGNESIUM SULFATE\POTASSIUM SULFATE\SODIUM SULFATE
     Indication: COLONOSCOPY
     Dosage: 2 X 6 OZ. BOTTLE
     Route: 048
     Dates: start: 20170124, end: 20170124

REACTIONS (6)
  - Rectal haemorrhage [None]
  - Nausea [None]
  - Abdominal pain [None]
  - Faeces discoloured [None]
  - Blood pressure increased [None]
  - Transient ischaemic attack [None]

NARRATIVE: CASE EVENT DATE: 20170125
